FAERS Safety Report 26009437 (Version 1)
Quarter: 2025Q4

REPORT INFORMATION
  Report Type: Spontaneous
  Country: RS (occurrence: RS)
  Receive Date: 20251107
  Receipt Date: 20251107
  Transmission Date: 20260117
  Serious: Yes (Hospitalization, Other)
  Sender: ROCHE
  Company Number: RS-ROCHE-10000422698

PATIENT
  Age: 30 Year
  Sex: Female

DRUGS (6)
  1. MYCOPHENOLATE MOFETIL [Suspect]
     Active Substance: MYCOPHENOLATE MOFETIL
     Indication: Renal transplant
     Route: 048
     Dates: start: 2009
  2. PREDNISONE [Suspect]
     Active Substance: PREDNISONE
     Indication: Renal transplant
     Route: 065
     Dates: start: 2009
  3. RAPAMUNE [Concomitant]
     Active Substance: SIROLIMUS
     Dates: start: 2004
  4. PROGRAF [Concomitant]
     Active Substance: TACROLIMUS
     Dates: end: 2004
  5. PROGRAF [Concomitant]
     Active Substance: TACROLIMUS
     Dates: start: 2006, end: 2009
  6. ICODEXTRIN [Concomitant]
     Active Substance: ICODEXTRIN

REACTIONS (8)
  - Anaemia [Unknown]
  - General physical health deterioration [Unknown]
  - Pyrexia [Unknown]
  - Cough [Not Recovered/Not Resolved]
  - Asthenia [Unknown]
  - Decreased appetite [Unknown]
  - Epilepsy [Unknown]
  - Peritonitis [Unknown]

NARRATIVE: CASE EVENT DATE: 20130204
